FAERS Safety Report 19921775 (Version 1)
Quarter: 2021Q4

REPORT INFORMATION
  Report Type: Spontaneous
  Country: US (occurrence: US)
  Receive Date: 20211005
  Receipt Date: 20211005
  Transmission Date: 20220303
  Serious: No
  Sender: FDA-Public Use
  Company Number: US-SANOFI-00779012

PATIENT
  Age: 53 Year
  Sex: Male

DRUGS (2)
  1. THYROGEN [Suspect]
     Active Substance: THYROTROPIN ALFA
     Dosage: UNK
     Dates: start: 20210920
  2. OXYCODONE [Concomitant]
     Active Substance: OXYCODONE
     Indication: Pain

REACTIONS (3)
  - Procedural pain [Unknown]
  - Post procedural inflammation [Unknown]
  - Nausea [Unknown]

NARRATIVE: CASE EVENT DATE: 20210920
